FAERS Safety Report 8778519 (Version 2)
Quarter: 2012Q4

REPORT INFORMATION
  Report Type: Report from Study
  Country: JP (occurrence: JP)
  Receive Date: 20120912
  Receipt Date: 20121231
  Transmission Date: 20130627
  Serious: Yes (Other)
  Sender: FDA-Public Use
  Company Number: JP-VERTEX PHARMACEUTICAL INC.-AE-2012-006414

PATIENT
  Age: 59 Year
  Sex: Male

DRUGS (11)
  1. VX-950 (TELAPREVIR) [Suspect]
     Indication: CHRONIC HEPATITIS C
     Dosage: 2250 mg, qd
     Route: 048
     Dates: start: 20120302, end: 20120416
  2. VX-950 (TELAPREVIR) [Suspect]
     Dosage: 1500 mg, qd
     Route: 048
     Dates: start: 20120417, end: 20120525
  3. REBETOL [Suspect]
     Indication: CHRONIC HEPATITIS C
     Dosage: 800 mg, qd
     Route: 048
     Dates: start: 20120302, end: 20120330
  4. REBETOL [Suspect]
     Dosage: 600 mg, qd
     Route: 048
     Dates: start: 20120331, end: 20120816
  5. PEGINTRON                          /01543001/ [Suspect]
     Indication: CHRONIC HEPATITIS C
     Dosage: 1.5 ?g/kg, qw
     Route: 058
     Dates: start: 20120302, end: 20120323
  6. PEGINTRON                          /01543001/ [Suspect]
     Dosage: 1.1 ?g/kg, qw
     Route: 058
     Dates: start: 20120330
  7. PEGINTRON                          /01543001/ [Suspect]
     Dosage: 1.2 ?g/kg, qw
     Route: 058
     Dates: end: 20120816
  8. PREDNISOLONE [Suspect]
     Indication: ADVERSE EVENT
     Dosage: 15 mg, qd
     Route: 048
     Dates: start: 20120309, end: 20120315
  9. PREDNISOLONE [Suspect]
     Dosage: 10 mg, qd
     Route: 048
     Dates: start: 20120316, end: 20120322
  10. PREDNISOLONE [Suspect]
     Dosage: 5 mg, qd
     Route: 048
     Dates: start: 20120323, end: 20120329
  11. PREDNISOLONE [Suspect]
     Dosage: 2 mg, qd
     Route: 048
     Dates: start: 20120330, end: 20120405

REACTIONS (1)
  - Renal impairment [Recovered/Resolved]
